FAERS Safety Report 8168662-3 (Version None)
Quarter: 2012Q1

REPORT INFORMATION
  Report Type: 
  Country: None (occurrence: None)
  Receive Date: 20120103
  Receipt Date: 20110928
  Transmission Date: 20120608
  Serious: No
  Sender: FDA-Public Use
  Company Number: AE-2011-001827

PATIENT
  Age: 52 Year
  Sex: Female
  Weight: 66.2252 kg

DRUGS (8)
  1. LEVOTHYROXINE SODIUM [Concomitant]
  2. HYDROCODONE BITARTRATE [Concomitant]
  3. PEGASYS [Concomitant]
  4. OXAPROZIN [Concomitant]
  5. PRISTIQ [Concomitant]
  6. INCIVEK [Suspect]
     Dosage: 2250 MG (750 MG,1 IN 8 HR),ORAL
     Route: 048
     Dates: start: 20110925
  7. RIBAVIRIN [Concomitant]
  8. ADDERALL (OBETROL) [Concomitant]

REACTIONS (4)
  - DYSGEUSIA [None]
  - DIARRHOEA [None]
  - ABDOMINAL PAIN UPPER [None]
  - NAUSEA [None]
